FAERS Safety Report 10198225 (Version 3)
Quarter: 2014Q2

REPORT INFORMATION
  Report Type: Report from Study
  Country: FR (occurrence: FR)
  Receive Date: 20140527
  Receipt Date: 20140626
  Transmission Date: 20141212
  Serious: Yes (Life-Threatening, Hospitalization, Other)
  Sender: FDA-Public Use
  Company Number: FR-ALEXION-A201400844

PATIENT
  Sex: 0

DRUGS (1)
  1. SOLIRIS [Suspect]
     Indication: PAROXYSMAL NOCTURNAL HAEMOGLOBINURIA
     Dosage: 900 MG, Q 15 DAYS
     Route: 042
     Dates: start: 200906

REACTIONS (5)
  - Cerebral venous thrombosis [Recovered/Resolved]
  - Meningococcal infection [Recovered/Resolved]
  - Loss of consciousness [Recovered/Resolved]
  - Haemolysis [Recovered/Resolved]
  - Treatment noncompliance [Unknown]
